FAERS Safety Report 8190574-X (Version None)
Quarter: 2012Q1

REPORT INFORMATION
  Report Type: 
  Country: None (occurrence: None)
  Receive Date: 20120307
  Receipt Date: 20120304
  Transmission Date: 20120608
  Serious: Yes (Death, Hospitalization)
  Sender: FDA-Public Use
  Company Number: EG-SANOFI-AVENTIS-2012SA014863

PATIENT
  Sex: Female

DRUGS (1)
  1. DOCETAXEL [Suspect]
     Route: 065

REACTIONS (2)
  - RESPIRATORY FAILURE [None]
  - BRONCHOPNEUMONIA [None]
